FAERS Safety Report 11265573 (Version 1)
Quarter: 2015Q3

REPORT INFORMATION
  Report Type: Spontaneous
  Country: US (occurrence: None)
  Receive Date: 20150710
  Receipt Date: 20150710
  Transmission Date: 20151125
  Serious: Yes (Life-Threatening)
  Sender: FDA-Public Use
  Company Number: None

PATIENT
  Age: 30 Year
  Sex: Female
  Weight: 64.41 kg

DRUGS (8)
  1. IBUPROFEN. [Concomitant]
     Active Substance: IBUPROFEN
  2. CHANTIX [Suspect]
     Active Substance: VARENICLINE TARTRATE
     Indication: SMOKING CESSATION THERAPY
     Route: 048
     Dates: start: 20150605, end: 20150708
  3. ZOFRAN [Concomitant]
     Active Substance: ONDANSETRON HYDROCHLORIDE
  4. OMEPRAZOLE. [Concomitant]
     Active Substance: OMEPRAZOLE
  5. MULTIVITAMIN [Concomitant]
     Active Substance: VITAMINS
  6. IRON [Concomitant]
     Active Substance: IRON
  7. GINESSA [Concomitant]
  8. POTASSIUM [Concomitant]
     Active Substance: POTASSIUM

REACTIONS (21)
  - Social fear [None]
  - Weight increased [None]
  - Verbal abuse [None]
  - Constipation [None]
  - Abdominal distension [None]
  - Libido decreased [None]
  - Alcohol intolerance [None]
  - Emotional disorder [None]
  - Anger [None]
  - Disturbance in attention [None]
  - Decreased appetite [None]
  - Nightmare [None]
  - Muscle spasms [None]
  - Abnormal dreams [None]
  - Anxiety [None]
  - Nausea [None]
  - Memory impairment [None]
  - Crying [None]
  - Vomiting [None]
  - Self-injurious ideation [None]
  - Suicidal ideation [None]

NARRATIVE: CASE EVENT DATE: 20150708
